FAERS Safety Report 9132093 (Version 1)
Quarter: 2013Q1

REPORT INFORMATION
  Report Type: Spontaneous
  Country: DE (occurrence: DE)
  Receive Date: 20130208
  Receipt Date: 20130208
  Transmission Date: 20140127
  Serious: Yes (Other)
  Sender: FDA-Public Use
  Company Number: DE-ELI_LILLY_AND_COMPANY-DE201212000184

PATIENT
  Sex: Male

DRUGS (2)
  1. BYETTA [Suspect]
     Indication: DIABETES MELLITUS
     Dosage: 10 UG, QD
     Route: 058
     Dates: start: 20070703
  2. ASPIRINE [Concomitant]

REACTIONS (1)
  - Pancreatitis chronic [Not Recovered/Not Resolved]
